FAERS Safety Report 7414778-6 (Version None)
Quarter: 2011Q1

REPORT INFORMATION
  Report Type: 
  Country: None (occurrence: None)
  Receive Date: 20110301
  Receipt Date: 20100126
  Transmission Date: 20110831
  Serious: Yes (Hospitalization)
  Sender: FDA-Public Use
  Company Number: US-JNJFOC-20100107450

PATIENT
  Age: 62 Year
  Sex: Female
  Weight: 108.8633 kg

DRUGS (12)
  1. TRAMADOL HCL [Concomitant]
  2. FERROUS SULFATE TAB [Concomitant]
  3. OXYBUTYNIN CHLORIDE (OXYBUTYNIN HYDROCHLORIDE) [Concomitant]
  4. SNYTHROID (LEVOTHYROXINE SODIUM) [Concomitant]
  5. MOTRIN IB [Suspect]
     Indication: PAIN
     Dosage: 400 MG, 2 IN 1 DAY, ORAL
     Route: 048
  6. VITAMIN (VITAMINS NOS) [Concomitant]
  7. METOPROLOL (METOPROLOL) [Concomitant]
  8. ESTRADIOL [Concomitant]
  9. MAGNESIUM OXIDE (MAGNESIUM OXIDE) [Concomitant]
  10. MICARDIS [Concomitant]
  11. OMEPRAZOLE [Concomitant]
  12. NIASPAN [Concomitant]

REACTIONS (6)
  - ABDOMINAL PAIN UPPER [None]
  - VOMITING [None]
  - DIARRHOEA [None]
  - NAUSEA [None]
  - GASTRIC HAEMORRHAGE [None]
  - PRODUCT QUALITY ISSUE [None]
